FAERS Safety Report 24090934 (Version 5)
Quarter: 2024Q4

REPORT INFORMATION
  Report Type: Spontaneous
  Country: US (occurrence: US)
  Receive Date: 20240715
  Receipt Date: 20241011
  Transmission Date: 20250115
  Serious: Yes (Other)
  Sender: PFIZER
  Company Number: US-PFIZER INC-202400209971

PATIENT
  Age: 14 Year
  Sex: Male
  Weight: 49.9 kg

DRUGS (2)
  1. GENOTROPIN [Suspect]
     Active Substance: SOMATROPIN
     Indication: Blood growth hormone
     Dosage: 1.8 MG, 1X/DAY (STARTED 6 OR 8 MONTHS AGO)
  2. GENOTROPIN [Suspect]
     Active Substance: SOMATROPIN
     Dosage: 1.8 MG, DAILY
     Route: 058
     Dates: start: 202308

REACTIONS (4)
  - Drug effect less than expected [Not Recovered/Not Resolved]
  - Drug dose omission by device [Unknown]
  - Device malfunction [Unknown]
  - Device information output issue [Unknown]

NARRATIVE: CASE EVENT DATE: 20240708
